FAERS Safety Report 11793722 (Version 1)
Quarter: 2015Q4

REPORT INFORMATION
  Report Type: Spontaneous
  Country: US (occurrence: US)
  Receive Date: 20151202
  Receipt Date: 20151202
  Transmission Date: 20160305
  Serious: No
  Sender: FDA-Public Use
  Company Number: US-BAYER-2015-476698

PATIENT
  Age: 74 Year
  Sex: Female
  Weight: 68.27 kg

DRUGS (8)
  1. TAMOXIFEN [Concomitant]
     Active Substance: TAMOXIFEN
  2. MIRALAX [Suspect]
     Active Substance: POLYETHYLENE GLYCOL 3350
     Indication: CONSTIPATION
     Dosage: 1 DF, QD
     Route: 048
     Dates: start: 201502
  3. LISINOPRIL. [Concomitant]
     Active Substance: LISINOPRIL
  4. CALCIUM [Concomitant]
     Active Substance: CALCIUM
  5. KRILL OIL [Concomitant]
     Active Substance: DIETARY SUPPLEMENT
  6. BAYER LOW DOSE [Suspect]
     Active Substance: ASPIRIN
     Dosage: 1 DF, QD
     Route: 048
  7. VITAMIN D3 [Concomitant]
     Active Substance: CHOLECALCIFEROL
  8. CALCIUM +VIT D [Concomitant]
     Active Substance: CALCIUM\VITAMIN D

REACTIONS (8)
  - Feeling abnormal [Not Recovered/Not Resolved]
  - Drug ineffective [None]
  - Flatulence [Not Recovered/Not Resolved]
  - Bowel movement irregularity [None]
  - Nausea [Not Recovered/Not Resolved]
  - Product use issue [None]
  - Dizziness [Recovered/Resolved]
  - Off label use [None]

NARRATIVE: CASE EVENT DATE: 20151123
